FAERS Safety Report 4890844-4 (Version None)
Quarter: 2006Q1

REPORT INFORMATION
  Report Type: 
  Country: None (occurrence: None)
  Receive Date: 20060123
  Receipt Date: 20060109
  Transmission Date: 20060701
  Serious: Yes (Hospitalization)
  Sender: FDA-Public Use
  Company Number: US015933

PATIENT
  Age: 29 Year
  Sex: Female
  Weight: 101.6057 kg

DRUGS (14)
  1. GABITRIL [Suspect]
     Indication: NEURALGIA
     Dosage: 4 MG QD ORAL
     Route: 048
     Dates: start: 20050501
  2. GABITRIL [Suspect]
     Indication: NEURALGIA
     Dosage: 16 MG QD ORAL
     Route: 048
     Dates: end: 20050818
  3. GABITRIL [Suspect]
     Indication: NEURALGIA
     Dosage: 32 MG QD ORAL
     Route: 048
     Dates: start: 20050819, end: 20050831
  4. REMERON [Concomitant]
  5. NEURONTIN [Concomitant]
  6. LEVORA 0.15/30-21 [Concomitant]
  7. ACIPHEX [Concomitant]
  8. BUSPAR [Concomitant]
  9. BIAXIN [Concomitant]
  10. OXYCONTIN [Concomitant]
  11. CYMBALTA [Concomitant]
  12. CLONAZEPAM [Concomitant]
  13. SEPTRA [Concomitant]
  14. VITAMIN SUPPLEMENTS [Concomitant]

REACTIONS (13)
  - ABDOMINAL PAIN LOWER [None]
  - CONFUSIONAL STATE [None]
  - CSF WHITE BLOOD CELL COUNT INCREASED [None]
  - DISORIENTATION [None]
  - HEADACHE [None]
  - INCONTINENCE [None]
  - NAUSEA [None]
  - POSTICTAL STATE [None]
  - RED BLOOD CELLS CSF POSITIVE [None]
  - STATUS EPILEPTICUS [None]
  - TREMOR [None]
  - UNRESPONSIVE TO VERBAL STIMULI [None]
  - URINARY INCONTINENCE [None]
